FAERS Safety Report 4440577-3 (Version None)
Quarter: 2004Q3

REPORT INFORMATION
  Report Type: 
  Country: None (occurrence: None)
  Receive Date: 20040831
  Receipt Date: 20040813
  Transmission Date: 20050211
  Serious: Yes (Other)
  Sender: FDA-Public Use
  Company Number: 601482

PATIENT
  Age: 29 Year
  Sex: Male

DRUGS (8)
  1. HEMOFIL [Suspect]
     Indication: FACTOR VIII DEFICIENCY
     Dates: start: 19790101, end: 19810101
  2. KRYOBULIN A (HUMAN COAGULATION FACTOR VIII (A)) [Suspect]
     Indication: FACTOR VIII DEFICIENCY
     Dates: start: 19810101, end: 19820101
  3. KOATE (FACTOR VIII (ANTIHAEMOPHILIC FACTOR)) [Suspect]
     Indication: FACTOR VIII DEFICIENCY
     Dates: start: 19840101, end: 19840101
  4. FACTORATE (FACTOR VIII (ANTIHAEMOPHILIC FACTOR)) [Suspect]
     Indication: FACTOR VIII DEFICIENCY
     Dates: start: 19810101, end: 19820101
  5. PROFILATE (UNCODED) [Suspect]
     Indication: FACTOR VIII DEFICIENCY
     Dates: start: 19820101, end: 19880101
  6. WHOLE BLOOD [Suspect]
     Indication: FACTOR VIII DEFICIENCY
     Dates: start: 19810101
  7. KRIOPRECIPITAT (FACTOR VIII (ANTIHAEMOPHILIC FACTOR)) [Suspect]
     Indication: FACTOR VIII DEFICIENCY
     Dates: start: 19700101
  8. ANTIHEMOPHILIC FACTOR (HUMAN) [Suspect]
     Indication: FACTOR VIII DEFICIENCY
     Dates: start: 19810101, end: 19900101

REACTIONS (4)
  - HEPATITIS A VIRUS [None]
  - HEPATITIS B VIRUS [None]
  - HEPATITIS C VIRUS [None]
  - HIV INFECTION [None]
